FAERS Safety Report 23757329 (Version 10)
Quarter: 2025Q3

REPORT INFORMATION
  Report Type: Report from Study
  Country: CA (occurrence: CA)
  Receive Date: 20240418
  Receipt Date: 20250904
  Transmission Date: 20251021
  Serious: Yes (Death, Hospitalization, Other)
  Sender: GLAXOSMITHKLINE
  Company Number: CA-GLAXOSMITHKLINE-CA2023106143

PATIENT
  Age: 64 Year
  Sex: Female

DRUGS (28)
  1. MEPOLIZUMAB [Suspect]
     Active Substance: MEPOLIZUMAB
     Indication: Asthma
     Dosage: 100 MG, Q4W
  2. MEPOLIZUMAB [Suspect]
     Active Substance: MEPOLIZUMAB
  3. MEPOLIZUMAB [Suspect]
     Active Substance: MEPOLIZUMAB
     Indication: Asthma
     Dosage: 100 MG, Q4W
  4. MEPOLIZUMAB [Suspect]
     Active Substance: MEPOLIZUMAB
  5. MEPOLIZUMAB [Suspect]
     Active Substance: MEPOLIZUMAB
     Indication: Asthma
     Dosage: 100 MG, Q4W
  6. MEPOLIZUMAB [Suspect]
     Active Substance: MEPOLIZUMAB
  7. MEPOLIZUMAB [Suspect]
     Active Substance: MEPOLIZUMAB
     Indication: Asthma
     Dosage: 100 MG, Q4W
  8. MEPOLIZUMAB [Suspect]
     Active Substance: MEPOLIZUMAB
  9. MEPOLIZUMAB [Suspect]
     Active Substance: MEPOLIZUMAB
     Indication: Asthma
     Dosage: 100 MG, Q4W
  10. MEPOLIZUMAB [Suspect]
     Active Substance: MEPOLIZUMAB
  11. MEPOLIZUMAB [Suspect]
     Active Substance: MEPOLIZUMAB
     Indication: Asthma
     Dosage: 100 MG, Q4W
  12. MEPOLIZUMAB [Suspect]
     Active Substance: MEPOLIZUMAB
  13. MEPOLIZUMAB [Suspect]
     Active Substance: MEPOLIZUMAB
     Indication: Asthma
     Dosage: 100 MG, Q4W
  14. MEPOLIZUMAB [Suspect]
     Active Substance: MEPOLIZUMAB
  15. MEPOLIZUMAB [Suspect]
     Active Substance: MEPOLIZUMAB
     Indication: Asthma
     Dosage: 100 MG, Q4W
  16. MEPOLIZUMAB [Suspect]
     Active Substance: MEPOLIZUMAB
  17. MEPOLIZUMAB [Suspect]
     Active Substance: MEPOLIZUMAB
     Indication: Asthma
     Dosage: 100 MG, Q4W
  18. MEPOLIZUMAB [Suspect]
     Active Substance: MEPOLIZUMAB
  19. MEPOLIZUMAB [Suspect]
     Active Substance: MEPOLIZUMAB
     Indication: Asthma
     Dosage: 100 MG, Q4W
  20. MEPOLIZUMAB [Suspect]
     Active Substance: MEPOLIZUMAB
  21. MEPOLIZUMAB [Suspect]
     Active Substance: MEPOLIZUMAB
     Indication: Asthma
     Dosage: 100 MG, Q4W
  22. MEPOLIZUMAB [Suspect]
     Active Substance: MEPOLIZUMAB
     Indication: Asthma
  23. COVID-19 VACCINE NOS [Suspect]
     Active Substance: COVID-19 VACCINE
     Indication: Prophylaxis
  24. INFLUENZA VIRUS VACCINE [Suspect]
     Active Substance: INFLUENZA VIRUS VACCINE
     Indication: Prophylaxis
  25. ADVAIR HFA [Concomitant]
     Active Substance: FLUTICASONE PROPIONATE\SALMETEROL XINAFOATE
     Indication: Product used for unknown indication
     Dosage: 2 PUFF(S), TID 250/25 MCG
  26. SPIRIVA [Concomitant]
     Active Substance: TIOTROPIUM BROMIDE MONOHYDRATE
     Indication: Product used for unknown indication
     Dosage: 2 PUFF(S), QD 2.5 MCG
  27. OLODATEROL HYDROCHLORIDE\TIOTROPIUM BROMIDE MONOHYDRATE [Concomitant]
     Active Substance: OLODATEROL HYDROCHLORIDE\TIOTROPIUM BROMIDE MONOHYDRATE
     Indication: Product used for unknown indication
  28. DOXYCYCLINE [Concomitant]
     Active Substance: DOXYCYCLINE
     Indication: Product used for unknown indication
     Dosage: 100 MG, BID

REACTIONS (29)
  - Death [Fatal]
  - Hospitalisation [Unknown]
  - Dyspnoea [Recovered/Resolved]
  - Cold sweat [Unknown]
  - Skin warm [Unknown]
  - Hypophagia [Unknown]
  - Asthma [Recovering/Resolving]
  - Depressed mood [Unknown]
  - Loss of consciousness [Unknown]
  - Oxygen saturation decreased [Not Recovered/Not Resolved]
  - Weight decreased [Unknown]
  - Skin infection [Not Recovered/Not Resolved]
  - Scab [Not Recovered/Not Resolved]
  - Rash [Not Recovered/Not Resolved]
  - Herpes zoster [Unknown]
  - Myalgia [Not Recovered/Not Resolved]
  - Back pain [Not Recovered/Not Resolved]
  - Lung disorder [Unknown]
  - Red blood cell count increased [Unknown]
  - Burning sensation [Unknown]
  - Weight increased [Unknown]
  - Pain in extremity [Unknown]
  - Sinusitis [Not Recovered/Not Resolved]
  - Groin pain [Unknown]
  - Malaise [Recovered/Resolved]
  - Arthralgia [Unknown]
  - Rhinorrhoea [Recovered/Resolved]
  - Haemorrhage [Unknown]
  - Inappropriate schedule of product administration [Unknown]

NARRATIVE: CASE EVENT DATE: 20230801
